FAERS Safety Report 5033104-3 (Version None)
Quarter: 2006Q2

REPORT INFORMATION
  Report Type: 
  Country: None (occurrence: None)
  Receive Date: 20060504
  Receipt Date: 20060109
  Transmission Date: 20061013
  Serious: Yes (Other)
  Sender: FDA-Public Use
  Company Number: PHEH2006US00683

PATIENT
  Age: 38 Year
  Sex: Female
  Weight: 61.2 kg

DRUGS (8)
  1. TEGRETOL [Suspect]
  2. CARBATROL [Suspect]
     Indication: EPILEPSY
     Dosage: SEE IMAGE
     Dates: start: 20040101, end: 20051001
  3. CARBATROL [Suspect]
     Indication: TRIGEMINAL NEURALGIA
     Dosage: SEE IMAGE
     Dates: start: 20040101, end: 20051001
  4. CARBATROL [Suspect]
     Indication: EPILEPSY
     Dosage: SEE IMAGE
     Dates: start: 20001001, end: 20051201
  5. CARBATROL [Suspect]
     Indication: TRIGEMINAL NEURALGIA
     Dosage: SEE IMAGE
     Dates: start: 20001001, end: 20051201
  6. CARBATROL [Suspect]
     Indication: EPILEPSY
     Dosage: SEE IMAGE
     Dates: start: 20051201
  7. CARBATROL [Suspect]
     Indication: TRIGEMINAL NEURALGIA
     Dosage: SEE IMAGE
     Dates: start: 20051201
  8. LYRICA [Concomitant]

REACTIONS (11)
  - AMNESIA [None]
  - ANORGASMIA [None]
  - CONVULSION [None]
  - DEPRESSION [None]
  - DIZZINESS [None]
  - DRY MOUTH [None]
  - DRY SKIN [None]
  - DYSKINESIA [None]
  - MUSCLE SPASMS [None]
  - SOMNOLENCE [None]
  - VISION BLURRED [None]
